FAERS Safety Report 5286628-8 (Version None)
Quarter: 2007Q2

REPORT INFORMATION
  Report Type: 
  Country: None (occurrence: None)
  Receive Date: 20070404
  Receipt Date: 20070330
  Transmission Date: 20071010
  Serious: Yes (Other)
  Sender: FDA-Public Use
  Company Number: JP-JPN-A200701044

PATIENT
  Age: 68 Year
  Sex: Male
  Weight: 51 kg

DRUGS (9)
  1. VALTREX [Suspect]
     Indication: HERPES ZOSTER
     Dosage: 500MG PER DAY
     Route: 048
     Dates: start: 20070308, end: 20070312
  2. LOXONIN [Concomitant]
     Route: 048
  3. TAKEPRON [Concomitant]
     Dosage: 30MG PER DAY
     Route: 048
  4. BASEN [Concomitant]
     Indication: DIABETES MELLITUS
     Dosage: .6MG PER DAY
     Route: 048
  5. CALTAN [Concomitant]
     Dosage: 4500MG PER DAY
     Route: 048
  6. RENAGEL [Concomitant]
     Dosage: 2250MG PER DAY
     Route: 048
  7. RISUMIC [Concomitant]
     Indication: PROCEDURAL HYPOTENSION
     Dosage: 10MG PER DAY
     Route: 048
  8. CYANOCOBALAMIN [Concomitant]
     Indication: HERPES ZOSTER
     Dosage: 1500MG PER DAY
     Route: 048
     Dates: start: 20070308, end: 20070312
  9. SELBEX [Concomitant]
     Indication: HERPES ZOSTER
     Dosage: 150MG PER DAY
     Route: 048
     Dates: start: 20070308, end: 20070312

REACTIONS (6)
  - BLOOD PRESSURE DECREASED [None]
  - CEREBRAL INFARCTION [None]
  - DYSARTHRIA [None]
  - GAIT DISTURBANCE [None]
  - HALLUCINATION [None]
  - SHOCK [None]
